FAERS Safety Report 8021961-8 (Version None)
Quarter: 2012Q1

REPORT INFORMATION
  Report Type: 
  Country: None (occurrence: None)
  Receive Date: 20120104
  Receipt Date: 20111230
  Transmission Date: 20120608
  Serious: Yes (Death, Other)
  Sender: FDA-Public Use
  Company Number: PHHY2011FR113927

PATIENT

DRUGS (1)
  1. METHADONE HCL [Suspect]
     Route: 064

REACTIONS (4)
  - STILLBIRTH [None]
  - CHONDRODYSTROPHY [None]
  - FOETAL EXPOSURE DURING PREGNANCY [None]
  - FOETAL MALFORMATION [None]
